FAERS Safety Report 14412203 (Version 2)
Quarter: 2018Q1

REPORT INFORMATION
  Report Type: Report from Study
  Country: GB (occurrence: GB)
  Receive Date: 20180119
  Receipt Date: 20180327
  Transmission Date: 20180509
  Serious: Yes (Other)
  Sender: FDA-Public Use
  Company Number: PHHY2018GB006867

PATIENT
  Age: 62 Year
  Sex: Female

DRUGS (1)
  1. COSENTYX [Suspect]
     Active Substance: SECUKINUMAB
     Indication: PSORIASIS
     Dosage: 300 MG, (2 PENS),QMO
     Route: 058
     Dates: start: 20171106

REACTIONS (3)
  - Inappropriate schedule of drug administration [Unknown]
  - Urinary tract infection [Unknown]
  - Immunosuppression [Unknown]

NARRATIVE: CASE EVENT DATE: 20171106
